FAERS Safety Report 21264769 (Version 1)
Quarter: 2022Q3

REPORT INFORMATION
  Report Type: Spontaneous
  Country: US (occurrence: None)
  Receive Date: 20220826
  Receipt Date: 20220826
  Transmission Date: 20221027
  Serious: Yes (Hospitalization)
  Sender: FDA-Public Use
  Company Number: None

PATIENT
  Age: 73 Year
  Sex: Male

DRUGS (2)
  1. APIXABAN [Suspect]
     Active Substance: APIXABAN
     Indication: Atrial fibrillation
     Dates: start: 20201217
  2. APIXABAN [Suspect]
     Active Substance: APIXABAN
     Dates: start: 20191119

REACTIONS (1)
  - Iron deficiency anaemia [None]

NARRATIVE: CASE EVENT DATE: 20220801
